FAERS Safety Report 8431852-6 (Version None)
Quarter: 2012Q2

REPORT INFORMATION
  Report Type: 
  Country: None (occurrence: None)
  Receive Date: 20120613
  Receipt Date: 20120605
  Transmission Date: 20120825
  Serious: Yes (Life-Threatening)
  Sender: FDA-Public Use
  Company Number: JP-CUBIST-2012S1000437

PATIENT
  Age: 77 Year
  Sex: Male
  Weight: 63 kg

DRUGS (11)
  1. TAMSULOSIN HCL [Concomitant]
     Indication: BENIGN PROSTATIC HYPERPLASIA
     Route: 048
     Dates: end: 20120528
  2. CUBICIN [Suspect]
     Route: 042
     Dates: start: 20120508, end: 20120510
  3. PANTETHINE [Concomitant]
     Indication: POST PROCEDURAL CONSTIPATION
     Route: 048
     Dates: end: 20120528
  4. RISPERDAL [Concomitant]
     Indication: SCHIZOPHRENIA
     Route: 048
     Dates: end: 20120528
  5. CUBICIN [Suspect]
     Indication: STAPHYLOCOCCAL INFECTION
     Route: 042
     Dates: start: 20120508, end: 20120510
  6. VANCOMYCIN [Concomitant]
     Indication: STAPHYLOCOCCAL INFECTION
     Route: 042
     Dates: start: 20120424, end: 20120507
  7. CEFTRIAXONE SODIUM [Suspect]
     Indication: PYREXIA
     Route: 042
     Dates: start: 20120506, end: 20120509
  8. VALSARTAN [Concomitant]
     Indication: HYPERTENSION
     Route: 048
     Dates: end: 20120528
  9. MAGNESIUM OXIDE [Concomitant]
     Indication: POST PROCEDURAL CONSTIPATION
     Route: 048
     Dates: end: 20120528
  10. PERINDOPRIL ERBUMINE [Concomitant]
     Indication: HYPERTENSION
     Route: 048
     Dates: end: 20120528
  11. ARICEPT [Concomitant]
     Indication: DEMENTIA
     Route: 048

REACTIONS (1)
  - THROMBOCYTOPENIA [None]
